FAERS Safety Report 7886126 (Version 4)
Quarter: 2012Q4

REPORT INFORMATION
  Report Type: 
  Country: US (occurrence: US)
  Receive Date: 20110405
  Receipt Date: 20120927
  Transmission Date: 20130627
  Serious: Yes (Life-Threatening, Hospitalization, Disabling, Other)
  Sender: FDA-Public Use
  Company Number: US-BAYER-2011-027517

PATIENT
  Age: 48 Year
  Sex: Female

DRUGS (8)
  1. YAZ [Suspect]
     Indication: PREMENSTRUAL SYNDROME
     Dosage: UNK
     Route: 048
     Dates: start: 20060925, end: 200702
  2. YAZ [Suspect]
     Indication: MOOD SWINGS
  3. ZOLOFT [Concomitant]
     Dosage: 50 mg, UNK
     Route: 048
     Dates: start: 20061214
  4. VITAMIN E [TOCOPHEROL] [Concomitant]
  5. EPIDURAL INJECTIONS [Concomitant]
  6. DIAZEPAM [Concomitant]
     Dosage: 5 mg, UNK
     Route: 048
     Dates: start: 20070202
  7. HYDROCODONE W/APAP [Concomitant]
     Dosage: 5/500mg
     Route: 048
     Dates: start: 20070202
  8. IBUPROFEN [Concomitant]
     Indication: PAIN

REACTIONS (20)
  - Pulmonary embolism [None]
  - Cholecystectomy [None]
  - Injury [None]
  - Pain [None]
  - General physical health deterioration [None]
  - Anxiety [None]
  - Anhedonia [None]
  - Emotional distress [None]
  - Mental disorder [None]
  - Chest discomfort [None]
  - Chest pain [None]
  - Hypopnoea [None]
  - Dyspnoea [None]
  - Anxiety [None]
  - Menorrhagia [None]
  - Fatigue [None]
  - Fear [None]
  - Weight increased [None]
  - Contusion [None]
  - Iron deficiency [None]
